FAERS Safety Report 5119533-8 (Version None)
Quarter: 2006Q4

REPORT INFORMATION
  Report Type: 
  Country: None (occurrence: None)
  Receive Date: 20061003
  Receipt Date: 20060920
  Transmission Date: 20070319
  Serious: Yes (Hospitalization)
  Sender: FDA-Public Use
  Company Number: PHBS2006JP14679

PATIENT
  Sex: Female

DRUGS (2)
  1. SANDOSTATIN [Suspect]
     Indication: GASTRINOMA
     Dosage: 100 UG/D
     Route: 058
     Dates: start: 20060824, end: 20060914
  2. SANDOSTATIN LAR [Suspect]
     Indication: GASTRINOMA
     Dosage: 20 MG/D
     Route: 030
     Dates: start: 20060907

REACTIONS (4)
  - FAECES PALE [None]
  - HYPERHIDROSIS [None]
  - HYPOGLYCAEMIA [None]
  - LOSS OF CONSCIOUSNESS [None]
